FAERS Safety Report 4629638-3 (Version None)
Quarter: 2005Q2

REPORT INFORMATION
  Report Type: 
  Country: None (occurrence: None)
  Receive Date: 20050406
  Receipt Date: 20050329
  Transmission Date: 20051028
  Serious: Yes (Disabling, Other)
  Sender: FDA-Public Use
  Company Number: 2005051749

PATIENT
  Age: 61 Year
  Sex: Male
  Weight: 82.6 kg

DRUGS (8)
  1. CARDURA [Suspect]
     Indication: HYPERTENSION
     Dosage: 2 MG (2 MG, QD), ORAL
     Route: 048
     Dates: start: 20000701, end: 20030201
  2. CARDURA XL [Suspect]
     Indication: HYPERTENSION
     Dosage: 8 MG ( 8 MG, QD), ORAL
     Route: 048
     Dates: start: 20030201, end: 20050201
  3. ACETYLSALICYLIC ACID 9ACETYLSALICYLIC ACID0 [Concomitant]
  4. PRAVASTATIN SODIUM [Concomitant]
  5. INDAPAMIDE [Concomitant]
  6. PERINDOPRIL (PERINDOPRIL) [Concomitant]
  7. ATENOLO (ATENOLOL) [Concomitant]
  8. APOREX (DEXTROPROPXYPHENE HYDROCHLORIDE, PARACETAMOL) [Concomitant]

REACTIONS (7)
  - ANHEDONIA [None]
  - DECREASED INTEREST [None]
  - DEPRESSION [None]
  - LIBIDO DECREASED [None]
  - MOOD ALTERED [None]
  - PERSONALITY CHANGE [None]
  - TRANSIENT ISCHAEMIC ATTACK [None]
